FAERS Safety Report 24424479 (Version 1)
Quarter: 2024Q4

REPORT INFORMATION
  Report Type: Spontaneous
  Country: PT (occurrence: PT)
  Receive Date: 20241010
  Receipt Date: 20241010
  Transmission Date: 20250114
  Serious: Yes (Other)
  Sender: VERTEX
  Company Number: PT-VERTEX PHARMACEUTICALS-2024-015490

PATIENT

DRUGS (1)
  1. ELEXACAFTOR\IVACAFTOR\TEZACAFTOR [Suspect]
     Active Substance: ELEXACAFTOR\IVACAFTOR\TEZACAFTOR
     Indication: Cystic fibrosis
     Dosage: UNK
     Route: 048

REACTIONS (12)
  - Hepatitis acute [Unknown]
  - Brain fog [Unknown]
  - Memory impairment [Unknown]
  - Insomnia [Unknown]
  - Speech disorder [Unknown]
  - Bipolar disorder [Unknown]
  - Cognitive disorder [Unknown]
  - Anxiety [Unknown]
  - Depression [Unknown]
  - Hypertension [Unknown]
  - Headache [Unknown]
  - Rash [Unknown]
